FAERS Safety Report 21772279 (Version 2)
Quarter: 2025Q3

REPORT INFORMATION
  Report Type: Spontaneous
  Country: US (occurrence: US)
  Receive Date: 20221223
  Receipt Date: 20250804
  Transmission Date: 20251020
  Serious: No
  Sender: SANOFI AVENTIS
  Company Number: US-SA-SAC20221223000055

PATIENT
  Sex: Female
  Weight: 47.62 kg

DRUGS (12)
  1. DUPIXENT [Suspect]
     Active Substance: DUPILUMAB
     Indication: Dermatitis atopic
     Route: 058
  2. DUPIXENT [Suspect]
     Active Substance: DUPILUMAB
     Route: 058
  3. DUPIXENT [Suspect]
     Active Substance: DUPILUMAB
     Dosage: 300 MG, QOW
  4. ALBUTEROL SULFATE [Concomitant]
     Active Substance: ALBUTEROL SULFATE
  5. PEPCID [Concomitant]
     Active Substance: FAMOTIDINE
  6. ADVAIR HFA [Concomitant]
     Active Substance: FLUTICASONE PROPIONATE\SALMETEROL XINAFOATE
  7. VENLAFAXINE HCL [Concomitant]
     Active Substance: VENLAFAXINE HYDROCHLORIDE
  8. PANTOPRAZOLE SODIUM [Concomitant]
     Active Substance: PANTOPRAZOLE SODIUM
  9. CYPROHEPTADINE HYDROCHLORIDE [Concomitant]
     Active Substance: CYPROHEPTADINE HYDROCHLORIDE
  10. AMLODIPINE BESYLATE [Concomitant]
     Active Substance: AMLODIPINE BESYLATE
  11. POLYMYXIN B SULFATE AND TRIMETHOPRIM [Concomitant]
     Active Substance: POLYMYXIN B SULFATE\TRIMETHOPRIM SULFATE
  12. VITAMIN D3 [Concomitant]
     Active Substance: CHOLECALCIFEROL

REACTIONS (4)
  - Confusional state [Unknown]
  - Feeling hot [Unknown]
  - Fear [Unknown]
  - Extra dose administered [Unknown]
